FAERS Safety Report 16534493 (Version 1)
Quarter: 2019Q3

REPORT INFORMATION
  Report Type: Spontaneous
  Country: US (occurrence: US)
  Receive Date: 20190705
  Receipt Date: 20190705
  Transmission Date: 20191004
  Serious: Yes (Other)
  Sender: FDA-Public Use
  Company Number: PHHY2019US153182

PATIENT
  Age: 51 Year
  Sex: Male

DRUGS (6)
  1. AZITHROMYCIN ANHYDROUS. [Suspect]
     Active Substance: AZITHROMYCIN ANHYDROUS
     Indication: PERIPHERAL SWELLING
  2. MYCOPHENOLATE MOFETIL. [Suspect]
     Active Substance: MYCOPHENOLATE MOFETIL
     Indication: INTERSTITIAL LUNG DISEASE
     Route: 065
  3. AZITHROMYCIN ANHYDROUS. [Suspect]
     Active Substance: AZITHROMYCIN ANHYDROUS
     Indication: PAIN
  4. CEPHALEXIN. [Suspect]
     Active Substance: CEPHALEXIN
     Indication: BRONCHIAL HYPERREACTIVITY
     Route: 065
  5. PREDNISONE. [Suspect]
     Active Substance: PREDNISONE
     Indication: BRONCHIAL HYPERREACTIVITY
     Route: 065
  6. AZITHROMYCIN ANHYDROUS. [Suspect]
     Active Substance: AZITHROMYCIN ANHYDROUS
     Indication: RASH
     Route: 048

REACTIONS (8)
  - Respiratory failure [Unknown]
  - Therapy non-responder [Unknown]
  - Product use in unapproved indication [Unknown]
  - Respiratory disorder [Not Recovered/Not Resolved]
  - Rash [Unknown]
  - Pain [Unknown]
  - Peripheral swelling [Unknown]
  - Disease progression [Unknown]
